FAERS Safety Report 6447225-1 (Version None)
Quarter: 2009Q4

REPORT INFORMATION
  Report Type: 
  Country: None (occurrence: None)
  Receive Date: 20091119
  Receipt Date: 20091105
  Transmission Date: 20100525
  Serious: Yes (Hospitalization, Other)
  Sender: FDA-Public Use
  Company Number: PHHY2009GB46858

PATIENT
  Sex: Male

DRUGS (6)
  1. CLOZARIL [Suspect]
     Indication: SCHIZOPHRENIA
     Dosage: 700 MG/DAY
     Route: 048
  2. CLOZARIL [Suspect]
     Dosage: 700 MG/DAY
     Route: 048
     Dates: start: 20090617
  3. ALCOHOL [Suspect]
     Dosage: 8-10 CANS/DAY
     Route: 048
  4. HALOPERIDOL [Concomitant]
     Indication: PSYCHOTIC DISORDER
     Dosage: 10 MG/DAY
     Route: 048
  5. LORAZEPAM [Concomitant]
     Indication: AGITATION
     Dosage: 2 MG/DAY
     Route: 048
  6. ZOPICLONE [Concomitant]
     Indication: INSOMNIA
     Dosage: 15 MG/DAY
     Route: 048

REACTIONS (5)
  - CONVULSION [None]
  - DIZZINESS [None]
  - DYSSTASIA [None]
  - FALL [None]
  - HEAD INJURY [None]
